FAERS Safety Report 24935053 (Version 1)
Quarter: 2025Q1

REPORT INFORMATION
  Report Type: Spontaneous
  Country: ES (occurrence: ES)
  Receive Date: 20250206
  Receipt Date: 20250206
  Transmission Date: 20250408
  Serious: Yes (Hospitalization, Other)
  Sender: PIRAMAL
  Company Number: ES-PIRAMAL CRITICAL CARE LIMITED-2025-PPL-000050

PATIENT

DRUGS (9)
  1. SEVOFLURANE [Suspect]
     Active Substance: SEVOFLURANE
     Indication: Induction of anaesthesia
  2. ETOMIDATE [Suspect]
     Active Substance: ETOMIDATE
     Indication: Induction of anaesthesia
  3. FENTANYL TRANSDERMAL SYSTEM [Suspect]
     Active Substance: FENTANYL
     Indication: Induction of anaesthesia
     Dates: start: 2010
  4. ATRACURIUM [Suspect]
     Active Substance: ATRACURIUM
     Indication: Induction of anaesthesia
  5. MIDAZOLAM [Concomitant]
     Active Substance: MIDAZOLAM
     Indication: Induction of anaesthesia
     Dates: start: 2010
  6. PROPOFOL [Concomitant]
     Active Substance: PROPOFOL
     Indication: Induction of anaesthesia
     Dates: start: 2010
  7. CISATRACURIUM [Concomitant]
     Active Substance: CISATRACURIUM
     Indication: Induction of anaesthesia
     Dates: start: 2010
  8. ATROPINE [Concomitant]
     Active Substance: ATROPINE
     Indication: Induction of anaesthesia
     Dates: start: 2010
  9. REMIFENTANIL [Concomitant]
     Active Substance: REMIFENTANIL
     Indication: Induction of anaesthesia
     Dates: start: 2010

REACTIONS (3)
  - Hypovolaemic shock [Unknown]
  - Myocardial ischaemia [Unknown]
  - Anaphylactic reaction [Unknown]

NARRATIVE: CASE EVENT DATE: 20100101
